FAERS Safety Report 7443617-2 (Version None)
Quarter: 2011Q2

REPORT INFORMATION
  Report Type: 
  Country: None (occurrence: None)
  Receive Date: 20110428
  Receipt Date: 20100726
  Transmission Date: 20111010
  Serious: No
  Sender: FDA-Public Use
  Company Number: US-BAUSCH-2010BL004040

PATIENT
  Age: 72 Year
  Sex: Female
  Weight: 68 kg

DRUGS (1)
  1. IPRATROPIUM BROMIDE [Suspect]
     Indication: RHINORRHOEA
     Route: 045
     Dates: start: 20090101

REACTIONS (1)
  - MEDICATION RESIDUE [None]
